FAERS Safety Report 22284829 (Version 1)
Quarter: 2023Q2

REPORT INFORMATION
  Report Type: Spontaneous
  Country: CN (occurrence: None)
  Receive Date: 20230504
  Receipt Date: 20230504
  Transmission Date: 20230722
  Serious: Yes (Disabling)
  Sender: FDA-Public Use
  Company Number: 2023A098784

PATIENT
  Age: 25347 Day
  Sex: Male
  Weight: 69.3 kg

DRUGS (7)
  1. CRESTOR [Suspect]
     Active Substance: ROSUVASTATIN CALCIUM
     Indication: Cerebral infarction
     Route: 048
     Dates: start: 20230221, end: 20230315
  2. BRILINTA [Suspect]
     Active Substance: TICAGRELOR
     Indication: Cerebral infarction
     Route: 048
     Dates: start: 20230221, end: 20230406
  3. OLANZAPINE [Suspect]
     Active Substance: OLANZAPINE
     Indication: Cerebral infarction
     Route: 048
     Dates: start: 20230223, end: 20230406
  4. ADALAT [Suspect]
     Active Substance: NIFEDIPINE
     Indication: Cerebral infarction
     Route: 048
     Dates: start: 20230221, end: 20230406
  5. HYDROXYCHLOROQUINE SULFATE [Suspect]
     Active Substance: HYDROXYCHLOROQUINE SULFATE
     Indication: Systemic lupus erythematosus
     Route: 048
     Dates: start: 20230304, end: 20230406
  6. PREDNISONE ACETATE [Suspect]
     Active Substance: PREDNISONE ACETATE
     Indication: Systemic lupus erythematosus
     Route: 048
     Dates: start: 20230304, end: 20230316
  7. ASPIRIN [Concomitant]
     Active Substance: ASPIRIN
     Indication: Cerebral infarction
     Route: 048
     Dates: start: 20230221, end: 20230406

REACTIONS (2)
  - Drug-induced liver injury [Unknown]
  - Hepatic function abnormal [Recovering/Resolving]

NARRATIVE: CASE EVENT DATE: 20230316
